FAERS Safety Report 18919484 (Version 1)
Quarter: 2021Q1

REPORT INFORMATION
  Report Type: Spontaneous
  Country: US (occurrence: US)
  Receive Date: 20210221
  Receipt Date: 20210221
  Transmission Date: 20210420
  Serious: No
  Sender: FDA-Public Use
  Company Number: US-ELI_LILLY_AND_COMPANY-US202102010033

PATIENT
  Sex: Female

DRUGS (4)
  1. INSULIN LISPRO [Suspect]
     Active Substance: INSULIN LISPRO
     Indication: DIABETES MELLITUS
     Dosage: 4 U, UNKNOWN
     Route: 065
     Dates: start: 20210217
  2. METFORMIN [Concomitant]
     Active Substance: METFORMIN HYDROCHLORIDE
     Indication: DIABETES MELLITUS
  3. LANTUS [Concomitant]
     Active Substance: INSULIN GLARGINE
     Indication: DIABETES MELLITUS
  4. NOVOLOG [Concomitant]
     Active Substance: INSULIN ASPART
     Indication: DIABETES MELLITUS
     Dosage: UNK UNK, UNKNOWN
     Route: 065

REACTIONS (2)
  - Hyperhidrosis [Unknown]
  - Blood glucose decreased [Recovered/Resolved]
